FAERS Safety Report 19804538 (Version 3)
Quarter: 2021Q3

REPORT INFORMATION
  Report Type: Spontaneous
  Country: CA (occurrence: CA)
  Receive Date: 20210908
  Receipt Date: 20210930
  Transmission Date: 20211014
  Serious: Yes (Other)
  Sender: FDA-Public Use
  Company Number: CA-PFIZER INC-202101116624

PATIENT
  Age: 89 Year
  Sex: Male
  Weight: 90 kg

DRUGS (7)
  1. CENTRUM MEN [Concomitant]
     Active Substance: MINERALS\VITAMINS
     Dosage: UNK
     Route: 048
  2. LASIX [Concomitant]
     Active Substance: FUROSEMIDE
     Dosage: 20 MG
  3. CRESTOR [Concomitant]
     Active Substance: ROSUVASTATIN CALCIUM
     Dosage: 5 MG
  4. LIXIANA [Concomitant]
     Active Substance: EDOXABAN TOSYLATE
     Dosage: 60 MG
  5. VYNDAQEL [Suspect]
     Active Substance: TAFAMIDIS MEGLUMINE
     Indication: CARDIAC AMYLOIDOSIS
     Dosage: 80 MG, 1X/DAY
     Route: 048
     Dates: start: 20200407
  6. TYLENOL ARTHRITIS PAIN [Concomitant]
     Active Substance: ACETAMINOPHEN
     Dosage: 650 MG 8 HR TABLET
  7. GLUCOPHAGE [Concomitant]
     Active Substance: METFORMIN HYDROCHLORIDE
     Dosage: 500 MG

REACTIONS (22)
  - Autonomic neuropathy [Unknown]
  - Mitral valve incompetence [Unknown]
  - Fall [Unknown]
  - Ejection fraction decreased [Unknown]
  - Left atrial dilatation [Unknown]
  - Atrial fibrillation [Not Recovered/Not Resolved]
  - Cardiac failure chronic [Not Recovered/Not Resolved]
  - Aortic valve incompetence [Unknown]
  - Pulmonary valve incompetence [Unknown]
  - Dizziness postural [Unknown]
  - Mitral valve calcification [Unknown]
  - Aortic valve stenosis [Unknown]
  - Left ventricular hypertrophy [Unknown]
  - Dyspnoea [Unknown]
  - Aortic valve calcification [Unknown]
  - Tricuspid valve incompetence [Unknown]
  - Haemorrhage [Unknown]
  - Haematuria [Not Recovered/Not Resolved]
  - Dizziness [Unknown]
  - Ventricular dyskinesia [Unknown]
  - Condition aggravated [Unknown]
  - Walking aid user [Unknown]

NARRATIVE: CASE EVENT DATE: 202103
